FAERS Safety Report 10449638 (Version 2)
Quarter: 2014Q3

REPORT INFORMATION
  Report Type: Spontaneous
  Country: US (occurrence: US)
  Receive Date: 20140912
  Receipt Date: 20140926
  Transmission Date: 20150326
  Serious: Yes (Death, Hospitalization)
  Sender: FDA-Public Use
  Company Number: US-INCYTE CORPORATION-2014IN001435

PATIENT
  Age: 77 Year
  Sex: Female

DRUGS (10)
  1. PERCOCET [Concomitant]
     Active Substance: ACETAMINOPHEN\OXYCODONE HYDROCHLORIDE
  2. ASCORBIC ACID. [Concomitant]
     Active Substance: ASCORBIC ACID
  3. ALBUTEROL                          /00139501/ [Concomitant]
     Active Substance: ALBUTEROL
  4. ATIVAN [Concomitant]
     Active Substance: LORAZEPAM
  5. OMEPRAZOLE. [Concomitant]
     Active Substance: OMEPRAZOLE
  6. CARAFATE [Concomitant]
     Active Substance: SUCRALFATE
  7. FENTANYL. [Concomitant]
     Active Substance: FENTANYL
  8. CHOLESTYRAMINE. [Concomitant]
     Active Substance: CHOLESTYRAMINE
  9. JAKAFI [Suspect]
     Active Substance: RUXOLITINIB
     Indication: MYELOFIBROSIS
     Dosage: 5 MG, BID
     Route: 048
     Dates: start: 20140403, end: 201405
  10. FERROUS SULFATE [Concomitant]
     Active Substance: FERROUS SULFATE\FERROUS SULFATE, DRIED

REACTIONS (3)
  - Acute myeloid leukaemia [Fatal]
  - Bone pain [Recovering/Resolving]
  - Urinary tract infection [Unknown]

NARRATIVE: CASE EVENT DATE: 2014
